FAERS Safety Report 10936303 (Version 1)
Quarter: 2015Q1

REPORT INFORMATION
  Report Type: Spontaneous
  Country: US (occurrence: None)
  Receive Date: 20150319
  Receipt Date: 20150319
  Transmission Date: 20150721
  Serious: Yes (Hospitalization)
  Sender: FDA-Public Use
  Company Number: None

PATIENT
  Age: 17 Year
  Sex: Female
  Weight: 65.3 kg

DRUGS (4)
  1. IBUPROFEN (MOTRIN) [Concomitant]
  2. LOESTRIN NOS [Suspect]
     Active Substance: ETHINYL ESTRADIOL\NORETHINDRONE ACETATE
  3. AMETHIA [Suspect]
     Active Substance: ETHINYL ESTRADIOL\LEVONORGESTREL
  4. DICLOFENAC [Concomitant]
     Active Substance: DICLOFENAC

REACTIONS (7)
  - Nausea [None]
  - Photophobia [None]
  - Neck pain [None]
  - Headache [None]
  - Haematoma [None]
  - Vomiting [None]
  - Photosensitivity reaction [None]

NARRATIVE: CASE EVENT DATE: 20150217
